FAERS Safety Report 7084629-0 (Version None)
Quarter: 2010Q4

REPORT INFORMATION
  Report Type: 
  Country: None (occurrence: None)
  Receive Date: 20101104
  Receipt Date: 20101026
  Transmission Date: 20110411
  Serious: Yes (Hospitalization)
  Sender: FDA-Public Use
  Company Number: PHHO2010FR08166

PATIENT
  Sex: Male
  Weight: 70 kg

DRUGS (2)
  1. NEORAL [Suspect]
     Indication: RENAL TRANSPLANT
     Dosage: 100 +100
     Route: 048
     Dates: start: 20000106
  2. CERTICAN [Suspect]
     Indication: RENAL TRANSPLANT
     Dosage: 1.5 + 1.5UNK
     Route: 048
     Dates: start: 20100106

REACTIONS (1)
  - GASTROINTESTINAL DISORDER [None]
